FAERS Safety Report 11923966 (Version 3)
Quarter: 2021Q3

REPORT INFORMATION
  Report Type: Report from Study
  Country: CA (occurrence: CA)
  Receive Date: 20160118
  Receipt Date: 20210803
  Transmission Date: 20211014
  Serious: Yes (Other)
  Sender: FDA-Public Use
  Company Number: CA-JNJFOC-20160110513

PATIENT
  Age: 69 Year
  Sex: Female

DRUGS (2)
  1. SIMPONI [Suspect]
     Active Substance: GOLIMUMAB
     Indication: RHEUMATOID ARTHRITIS
     Route: 058
     Dates: start: 20110727
  2. CEFPROZIL. [Concomitant]
     Active Substance: CEFPROZIL
     Route: 065

REACTIONS (3)
  - Eye operation [Unknown]
  - Influenza [Unknown]
  - Product dose omission issue [Unknown]
